FAERS Safety Report 13450777 (Version 1)
Quarter: 2017Q2

REPORT INFORMATION
  Report Type: Spontaneous
  Country: US (occurrence: US)
  Receive Date: 20170418
  Receipt Date: 20170418
  Transmission Date: 20170830
  Serious: Yes (Hospitalization, Other)
  Sender: FDA-Public Use
  Company Number: US-ROCHE-1921813

PATIENT
  Sex: Female

DRUGS (1)
  1. RITUXAN [Suspect]
     Active Substance: RITUXIMAB
     Indication: PRODUCT USED FOR UNKNOWN INDICATION
     Route: 042
     Dates: start: 20170329

REACTIONS (7)
  - Paralysis [Unknown]
  - Blood potassium decreased [Unknown]
  - Joint swelling [Unknown]
  - Chills [Unknown]
  - Dehydration [Unknown]
  - Pyrexia [Unknown]
  - Urticaria [Unknown]
